FAERS Safety Report 4355495-9 (Version None)
Quarter: 2004Q2

REPORT INFORMATION
  Report Type: 
  Country: None (occurrence: None)
  Receive Date: 20040503
  Receipt Date: 20040422
  Transmission Date: 20050107
  Serious: Yes (Hospitalization)
  Sender: FDA-Public Use
  Company Number: ENT 2004-0076

PATIENT
  Age: 72 Year
  Sex: Female

DRUGS (5)
  1. COMTESS (ENTACAPONE) [Suspect]
     Dosage: 600 MG (200 MG, 3 IN 1 D), ORAL
     Route: 048
     Dates: end: 20040309
  2. DOMPERIDONE [Concomitant]
  3. IBUPROFEN [Concomitant]
  4. PRAMIPEXOLE [Concomitant]
  5. SINEMET [Concomitant]

REACTIONS (2)
  - CONFUSIONAL STATE [None]
  - HALLUCINATION, VISUAL [None]
